FAERS Safety Report 6932468-0 (Version None)
Quarter: 2010Q3

REPORT INFORMATION
  Report Type: 
  Country: None (occurrence: None)
  Receive Date: 20100819
  Receipt Date: 20100809
  Transmission Date: 20110219
  Serious: Yes (Hospitalization, Other)
  Sender: FDA-Public Use
  Company Number: US-PFIZER INC-2010044568

PATIENT
  Sex: Female

DRUGS (3)
  1. CHANTIX [Suspect]
     Indication: SMOKING CESSATION THERAPY
     Dosage: STARTER PACK
     Dates: start: 20070201, end: 20080324
  2. WELLBUTRIN [Concomitant]
     Indication: DEPRESSION
     Dosage: UNK
     Dates: start: 20030101, end: 20090101
  3. WELLBUTRIN [Concomitant]
     Indication: SMOKING CESSATION THERAPY

REACTIONS (8)
  - ANXIETY [None]
  - DEPRESSION [None]
  - HALLUCINATION [None]
  - INTENTIONAL OVERDOSE [None]
  - MENTAL DISORDER [None]
  - PANIC DISORDER [None]
  - PARANOIA [None]
  - SUICIDE ATTEMPT [None]
